FAERS Safety Report 9265307 (Version 1)
Quarter: 2013Q2

REPORT INFORMATION
  Report Type: Spontaneous
  Country: US (occurrence: US)
  Receive Date: 20130501
  Receipt Date: 20130501
  Transmission Date: 20140414
  Serious: Yes (Other)
  Sender: FDA-Public Use
  Company Number: US-CELGENEUS-163-21880-13044241

PATIENT
  Age: 65 Year
  Sex: Female
  Weight: 63.56 kg

DRUGS (11)
  1. REVLIMID [Suspect]
     Indication: PLASMA CELL MYELOMA
     Dosage: 10 MILLIGRAM
     Route: 048
     Dates: start: 200903
  2. REVLIMID [Suspect]
     Dosage: 10MG-15MG
     Route: 048
     Dates: start: 200903
  3. REVLIMID [Suspect]
     Dosage: 10 MILLIGRAM
     Route: 048
     Dates: start: 201101, end: 201210
  4. WELCHOL [Concomitant]
     Indication: DIVERTICULITIS
     Dosage: 2 TABLET
     Route: 048
  5. OMEPRAZOLE [Concomitant]
     Indication: GASTROOESOPHAGEAL REFLUX DISEASE
     Dosage: 20 MILLIGRAM
     Route: 048
  6. ASACOL [Concomitant]
     Indication: DIVERTICULITIS
     Dosage: 1 TABLET
     Route: 048
  7. ALIGN [Concomitant]
     Indication: PRODUCT USED FOR UNKNOWN INDICATION
     Dosage: 4 MILLIGRAM
     Route: 048
  8. AMLODIPINE [Concomitant]
     Indication: HYPERTENSION
     Dosage: 10 MILLIGRAM
     Route: 048
  9. GABAPENTIN [Concomitant]
     Indication: NEUROPATHY PERIPHERAL
     Dosage: 300 MILLIGRAM
     Route: 048
  10. MONTELUKAST [Concomitant]
     Indication: ASTHMA
     Dosage: 10 MILLIGRAM
     Route: 048
  11. ALPRAZOLAM [Concomitant]
     Indication: SLEEP DISORDER
     Dosage: 1 MILLIGRAM
     Route: 048

REACTIONS (1)
  - Pulmonary mass [Not Recovered/Not Resolved]
